FAERS Safety Report 10488588 (Version 1)
Quarter: 2014Q4

REPORT INFORMATION
  Report Type: Report from Study
  Country: US (occurrence: US)
  Receive Date: 20141002
  Receipt Date: 20141002
  Transmission Date: 20150528
  Serious: Yes (Other)
  Sender: FDA-Public Use
  Company Number: US-AMGEN INC.-USASP2014074820

PATIENT
  Age: 59 Year
  Sex: Female

DRUGS (1)
  1. ENBREL [Suspect]
     Active Substance: ETANERCEPT
     Indication: RHEUMATOID ARTHRITIS
     Dosage: UNK MG, QWK
     Route: 065
     Dates: start: 20140324, end: 2014

REACTIONS (4)
  - Rheumatoid arthritis [Unknown]
  - Drug effect decreased [Unknown]
  - Gait disturbance [Unknown]
  - Mobility decreased [Unknown]

NARRATIVE: CASE EVENT DATE: 2014
